FAERS Safety Report 6504748-4 (Version None)
Quarter: 2009Q4

REPORT INFORMATION
  Report Type: 
  Country: None (occurrence: None)
  Receive Date: 20091214
  Receipt Date: 20091201
  Transmission Date: 20100525
  Serious: Yes (Death)
  Sender: FDA-Public Use
  Company Number: 2007310064

PATIENT
  Age: 17 Month
  Sex: Male
  Weight: 13.6 kg

DRUGS (2)
  1. BENADRYL CREAM ORIGINAL STRENGTH (DIPHENHYDRAMINE, ZINC ACETATE) [Suspect]
     Indication: PRURITUS
     Dosage: ONE DOSE WEDNESDAY AND ONE DOSE SATURDAY (1 IN 1 D) TOPICAL
     Route: 061
     Dates: start: 20060208, end: 20060211
  2. DRUG, UNSPECIFIED (DRUG, UNSPECIFIED) [Suspect]

REACTIONS (32)
  - ALANINE AMINOTRANSFERASE INCREASED [None]
  - ANION GAP INCREASED [None]
  - APNOEA [None]
  - ASPARTATE AMINOTRANSFERASE INCREASED [None]
  - BLOOD ALBUMIN DECREASED [None]
  - BLOOD CHLORIDE INCREASED [None]
  - BLOOD CREATININE INCREASED [None]
  - BLOOD GLUCOSE DECREASED [None]
  - BLOOD GLUCOSE INCREASED [None]
  - BLOOD METHAEMOGLOBIN PRESENT [None]
  - BLOOD PH DECREASED [None]
  - BLOOD POTASSIUM INCREASED [None]
  - BLOOD UREA INCREASED [None]
  - BODY TEMPERATURE INCREASED [None]
  - BRAIN OEDEMA [None]
  - CARBON DIOXIDE DECREASED [None]
  - CARBOXYHAEMOGLOBIN DECREASED [None]
  - CARDIAC ARREST [None]
  - CARDIAC DISORDER [None]
  - CORNEAL OPACITY [None]
  - CYANOSIS [None]
  - DRUG LEVEL INCREASED [None]
  - DRUG TOXICITY [None]
  - LOSS OF CONSCIOUSNESS [None]
  - PETECHIAE [None]
  - PULMONARY HAEMORRHAGE [None]
  - PULMONARY OEDEMA [None]
  - PULSE ABSENT [None]
  - PUPIL FIXED [None]
  - THYMUS DISORDER [None]
  - UNRESPONSIVE TO STIMULI [None]
  - VOMITING [None]
